FAERS Safety Report 18706359 (Version 1)
Quarter: 2021Q1

REPORT INFORMATION
  Report Type: Spontaneous
  Country: US (occurrence: US)
  Receive Date: 20210106
  Receipt Date: 20210106
  Transmission Date: 20210419
  Serious: Yes (Hospitalization, Other)
  Sender: FDA-Public Use
  Company Number: US-AMGEN-USASP2020212610

PATIENT
  Age: 61 Year
  Sex: Female

DRUGS (5)
  1. CINACALCET HCL [Suspect]
     Active Substance: CINACALCET HYDROCHLORIDE
     Dosage: 60 MILLIGRAM, BID
     Route: 065
  2. CINACALCET HCL [Suspect]
     Active Substance: CINACALCET HYDROCHLORIDE
     Indication: HYPERCALCAEMIA
     Dosage: 60 MILLIGRAM, QD
     Route: 065
  3. CINACALCET HCL [Suspect]
     Active Substance: CINACALCET HYDROCHLORIDE
     Indication: HYPERPARATHYROIDISM
     Dosage: 90 MILLIGRAM, QD
     Route: 065
  4. CINACALCET HCL [Suspect]
     Active Substance: CINACALCET HYDROCHLORIDE
     Dosage: 90 MILLIGRAM, BID
     Route: 065
  5. CINACALCET HCL [Suspect]
     Active Substance: CINACALCET HYDROCHLORIDE
     Dosage: 60 MILLIGRAM, BID
     Route: 065

REACTIONS (8)
  - Hydronephrosis [Unknown]
  - Polyomavirus viraemia [Unknown]
  - Drug ineffective [Unknown]
  - Anti-HLA antibody test positive [Unknown]
  - Post procedural complication [Unknown]
  - Blood creatinine increased [Recovering/Resolving]
  - Nephrolithiasis [Unknown]
  - Nephrocalcinosis [Unknown]
